FAERS Safety Report 25664096 (Version 1)
Quarter: 2025Q3

REPORT INFORMATION
  Report Type: Spontaneous
  Country: US (occurrence: US)
  Receive Date: 20250811
  Receipt Date: 20250811
  Transmission Date: 20251021
  Serious: Yes (Other)
  Sender: OCTAPHARMA
  Company Number: US-OCTA-2025000671

PATIENT
  Age: 20 Year
  Sex: Female

DRUGS (4)
  1. PROTHROMBIN COMPLEX CONCENTRATE [Suspect]
     Active Substance: COAGULATION FACTOR IX HUMAN\COAGULATION FACTOR VII HUMAN\COAGULATION FACTOR X HUMAN\PROTEIN C\PROTEI
     Indication: Haemorrhage
     Route: 042
  2. HEPARIN [Suspect]
     Active Substance: HEPARIN SODIUM
     Indication: Thrombosis
     Route: 042
  3. IRON [Concomitant]
     Active Substance: IRON
     Indication: Haemoglobin decreased
     Route: 042
  4. ERYTHROPOIETIN [Concomitant]
     Active Substance: ERYTHROPOIETIN
     Indication: Haemoglobin decreased
     Route: 042

REACTIONS (5)
  - Pulmonary embolism [Recovered/Resolved]
  - Acute respiratory distress syndrome [Recovered/Resolved]
  - Cardiac ventricular thrombosis [Recovered/Resolved]
  - Vena cava thrombosis [Recovered/Resolved]
  - Heparin-induced thrombocytopenia [Recovered/Resolved]
